FAERS Safety Report 7227009-7 (Version None)
Quarter: 2011Q1

REPORT INFORMATION
  Report Type: 
  Country: None (occurrence: None)
  Receive Date: 20110114
  Receipt Date: 20110106
  Transmission Date: 20110831
  Serious: Yes (Other)
  Sender: FDA-Public Use
  Company Number: ES-SANOFI-AVENTIS-2010SA066618

PATIENT
  Sex: Female

DRUGS (1)
  1. INSULIN GLARGINE [Suspect]
     Route: 058
     Dates: end: 20101001

REACTIONS (3)
  - DIABETIC MASTOPATHY [None]
  - BREAST MASS [None]
  - RETINOPATHY PROLIFERATIVE [None]
